APPROVED DRUG PRODUCT: UNITENSEN
Active Ingredient: CRYPTENAMINE TANNATES
Strength: 260CSR UNIT
Dosage Form/Route: TABLET;ORAL
Application: N009217 | Product #001
Applicant: MEDPOINTE PHARMACEUTICALS MEDPOINTE HEALTHCARE INC
Approved: Approved Prior to Jan 1, 1982 | RLD: No | RS: No | Type: DISCN